FAERS Safety Report 13530436 (Version 1)
Quarter: 2017Q2

REPORT INFORMATION
  Report Type: Other
  Country: GB (occurrence: US)
  Receive Date: 20170509
  Receipt Date: 20170509
  Transmission Date: 20170830
  Serious: Yes (Hospitalization)
  Sender: FDA-Public Use
  Company Number: US-INTERNATIONAL MEDICATION SYSTEMS, LIMITED-2020497

PATIENT
  Age: 56 Year
  Sex: Male

DRUGS (8)
  1. HYDROMORPHONE HCL [Suspect]
     Active Substance: HYDROMORPHONE HYDROCHLORIDE
     Route: 048
  2. FENTANYL. [Suspect]
     Active Substance: FENTANYL
     Route: 062
  3. FENTANYL. [Suspect]
     Active Substance: FENTANYL
     Route: 062
  4. HYDROMORPHONE PCA (PATIENT-CONTROLLED ANALGESIA) [Suspect]
     Active Substance: HYDROMORPHONE
     Route: 042
  5. FENTANYL. [Suspect]
     Active Substance: FENTANYL
     Route: 042
  6. HYDROCODONE BITARTRATE AND ACETAMINOPHEN [Concomitant]
     Active Substance: ACETAMINOPHEN\HYDROCODONE BITARTRATE
     Route: 048
  7. MORPHINE PCA (PATIENT-CONTROLLED ANALGESIA) [Suspect]
     Active Substance: MORPHINE
  8. MORPHINE ER (EXTENDED RELEASE), 60 MG [Suspect]
     Active Substance: MORPHINE SULFATE

REACTIONS (1)
  - Hyperaesthesia [Recovered/Resolved]
